FAERS Safety Report 8132035-X (Version None)
Quarter: 2012Q1

REPORT INFORMATION
  Report Type: 
  Country: None (occurrence: None)
  Receive Date: 20120207
  Receipt Date: 20120124
  Transmission Date: 20120608
  Serious: Yes (Other)
  Sender: FDA-Public Use
  Company Number: JPI-P-019480

PATIENT
  Age: 43 Year
  Sex: Female

DRUGS (2)
  1. XYREM [Suspect]
     Indication: NARCOLEPSY
     Dosage: 4.5 GM (2.25 GM, 2 IN 1 D), ORAL (UNKNOWN, UNSPECIFIED INTERIM DOSE), ORAL 6 GM (3 GM, 2 IN 1 D), OR
     Route: 048
     Dates: start: 20070828
  2. XYREM [Suspect]
     Indication: NARCOLEPSY
     Dosage: 4.5 GM (2.25 GM, 2 IN 1 D), ORAL (UNKNOWN, UNSPECIFIED INTERIM DOSE), ORAL 6 GM (3 GM, 2 IN 1 D), OR
     Route: 048
     Dates: start: 20111012

REACTIONS (5)
  - DECREASED APPETITE [None]
  - OEDEMA PERIPHERAL [None]
  - MUSCULAR WEAKNESS [None]
  - SENSATION OF HEAVINESS [None]
  - OOPHORECTOMY [None]
